FAERS Safety Report 12628606 (Version 1)
Quarter: 2016Q3

REPORT INFORMATION
  Report Type: Spontaneous
  Country: US (occurrence: US)
  Receive Date: 20160808
  Receipt Date: 20160808
  Transmission Date: 20161109
  Serious: No
  Sender: FDA-Public Use
  Company Number: US-JAZZ-2016-US-003959

PATIENT
  Sex: Female

DRUGS (31)
  1. VITAMIN B12 [Concomitant]
     Active Substance: CYANOCOBALAMIN
  2. ALOE VERA [Concomitant]
     Active Substance: ALOE VERA LEAF
  3. CATS CLAW [Concomitant]
  4. LICORICE ROOT [Concomitant]
  5. MAGNESIUM OXIDE. [Concomitant]
     Active Substance: MAGNESIUM OXIDE
  6. ZINC CHELATE [Concomitant]
  7. XYREM [Suspect]
     Active Substance: SODIUM OXYBATE
     Indication: NARCOLEPSY
     Dosage: 2.25 G, BID
     Route: 048
     Dates: start: 201101, end: 201103
  8. SEPTOCAINE [Concomitant]
     Active Substance: ARTICAINE HYDROCHLORIDE\EPINEPHRINE BITARTRATE
  9. GLUCOSAMINE [Concomitant]
     Active Substance: GLUCOSAMINE
  10. OFLOXACIN. [Concomitant]
     Active Substance: OFLOXACIN
  11. EPINEPHRINE. [Concomitant]
     Active Substance: EPINEPHRINE
  12. XYREM [Suspect]
     Active Substance: SODIUM OXYBATE
     Dosage: 4.5 G, BID
     Route: 048
     Dates: start: 201103
  13. AZO [Concomitant]
     Active Substance: PHENAZOPYRIDINE HYDROCHLORIDE
     Indication: PRODUCT USED FOR UNKNOWN INDICATION
  14. MIRENA [Concomitant]
     Active Substance: LEVONORGESTREL
  15. KIRKLAND SIGNATURE ALLER TEC ALLERGY [Concomitant]
     Active Substance: CETIRIZINE HYDROCHLORIDE
  16. VICODIN [Concomitant]
     Active Substance: ACETAMINOPHEN\HYDROCODONE BITARTRATE
  17. MULTI VITA BETS WITH FLUORIDE [Concomitant]
  18. LAMICTAL XR [Concomitant]
     Active Substance: LAMOTRIGINE
  19. MARCAINE [Concomitant]
     Active Substance: BUPIVACAINE HYDROCHLORIDE
  20. FISH OIL 1-A-DAY + VITAMIN D3 [Concomitant]
  21. CALCIUM + MAGNESIUM [Concomitant]
  22. PROZAC [Concomitant]
     Active Substance: FLUOXETINE HYDROCHLORIDE
  23. KEPPRA [Concomitant]
     Active Substance: LEVETIRACETAM
  24. CALMS FORTE [Concomitant]
  25. VITAMIN D [Concomitant]
     Active Substance: CHOLECALCIFEROL
  26. LECITHIN [Concomitant]
     Active Substance: LECITHIN
  27. VENLAFAXINE HCL [Concomitant]
     Active Substance: VENLAFAXINE HYDROCHLORIDE
  28. L-GLUTAMINE [Concomitant]
  29. CHOLINE CITRATE [Concomitant]
  30. MARSHMALLOW [Concomitant]
     Active Substance: ALCOHOL
  31. ELM [Concomitant]
     Active Substance: ELM

REACTIONS (1)
  - Pollakiuria [Not Recovered/Not Resolved]
